FAERS Safety Report 4929770-0 (Version None)
Quarter: 2006Q1

REPORT INFORMATION
  Report Type: 
  Country: None (occurrence: None)
  Receive Date: 20060301
  Receipt Date: 20060223
  Transmission Date: 20060701
  Serious: Yes (Death)
  Sender: FDA-Public Use
  Company Number: GB-MERCK-0602GBR00136

PATIENT
  Age: 32 Year
  Sex: Female
  Weight: 80 kg

DRUGS (6)
  1. VIOXX [Suspect]
     Indication: RHEUMATOID ARTHRITIS
     Route: 048
     Dates: start: 20020214, end: 20041012
  2. LANSOPRAZOLE [Concomitant]
     Route: 048
     Dates: start: 20040108
  3. ACETAMINOPHEN [Concomitant]
     Route: 048
     Dates: start: 20030701, end: 20050802
  4. LEFLUNOMIDE [Concomitant]
     Route: 048
     Dates: start: 20030310, end: 20050801
  5. FERROUS SULFATE [Concomitant]
     Route: 048
     Dates: start: 20020129, end: 20050801
  6. TRAMADOL HYDROCHLORIDE [Concomitant]
     Route: 048
     Dates: start: 20010829

REACTIONS (6)
  - CARDIOGENIC SHOCK [None]
  - GRANULOMA [None]
  - MYOCARDIAL ISCHAEMIA [None]
  - PLEURAL EFFUSION [None]
  - PULMONARY OEDEMA [None]
  - VASCULITIS [None]
